FAERS Safety Report 25645125 (Version 2)
Quarter: 2025Q3

REPORT INFORMATION
  Report Type: Spontaneous
  Country: BR (occurrence: BR)
  Receive Date: 20250805
  Receipt Date: 20250813
  Transmission Date: 20251021
  Serious: Yes (Death, Hospitalization, Other)
  Sender: SANDOZ
  Company Number: BR-SANDOZ-SDZ2025BR055966

PATIENT
  Age: 44 Year
  Sex: Female
  Weight: 118 kg

DRUGS (11)
  1. AMLODIPINE BESYLATE [Suspect]
     Active Substance: AMLODIPINE BESYLATE
     Indication: Product used for unknown indication
     Dosage: 5 MG, 1-0-0
     Route: 065
  2. CIPROFIBRATE [Suspect]
     Active Substance: CIPROFIBRATE
     Indication: Weight decreased
     Dosage: 100 MG, 0-0-1
     Route: 065
  3. DIOSMIN\HESPERIDIN [Suspect]
     Active Substance: DIOSMIN\HESPERIDIN
     Indication: Product used for unknown indication
     Route: 065
  4. GLICLAZIDE [Suspect]
     Active Substance: GLICLAZIDE
     Indication: Product used for unknown indication
     Dosage: 30 MG, 2-0-2
     Route: 065
  5. METFORMIN HYDROCHLORIDE [Suspect]
     Active Substance: METFORMIN HYDROCHLORIDE
     Indication: Product used for unknown indication
     Route: 065
  6. HYDROCHLOROTHIAZIDE [Suspect]
     Active Substance: HYDROCHLOROTHIAZIDE
     Indication: Product used for unknown indication
     Route: 065
  7. HYDROCHLOROTHIAZIDE [Suspect]
     Active Substance: HYDROCHLOROTHIAZIDE
     Indication: Product used for unknown indication
     Dosage: 25 MG, 1-0-0
     Route: 065
  8. LOSARTAN POTASSIUM [Suspect]
     Active Substance: LOSARTAN POTASSIUM
     Indication: Product used for unknown indication
     Route: 065
  9. METOCLOPRAMIDE [Suspect]
     Active Substance: METOCLOPRAMIDE
     Indication: Product used for unknown indication
     Route: 065
  10. METOCLOPRAMIDE [Suspect]
     Active Substance: METOCLOPRAMIDE
     Indication: Product used for unknown indication
     Route: 065
  11. SIMVASTATIN [Suspect]
     Active Substance: SIMVASTATIN
     Indication: Product used for unknown indication
     Dosage: 20 MG, 0-0-1
     Route: 065

REACTIONS (23)
  - Death [Fatal]
  - Platelet count decreased [Unknown]
  - Joint dislocation [Unknown]
  - Palpitations [Unknown]
  - Ligament sprain [Unknown]
  - Abdominal distension [Recovering/Resolving]
  - Arthralgia [Unknown]
  - Haematoma [Unknown]
  - Joint swelling [Unknown]
  - Urinary tract disorder [Unknown]
  - Pyrexia [Unknown]
  - Eye pain [Unknown]
  - Mucosal haemorrhage [Unknown]
  - Condition aggravated [Unknown]
  - Dyspnoea [Unknown]
  - Confusional state [Unknown]
  - Orthostatic hypotension [Unknown]
  - Abdominal pain [Unknown]
  - Headache [Unknown]
  - Myalgia [Unknown]
  - Vomiting [Unknown]
  - Malaise [Unknown]
  - Medication error [Unknown]

NARRATIVE: CASE EVENT DATE: 20250306
